FAERS Safety Report 6330169-3 (Version None)
Quarter: 2009Q3

REPORT INFORMATION
  Report Type: 
  Country: None (occurrence: None)
  Receive Date: 20090827
  Receipt Date: 20070709
  Transmission Date: 20100115
  Serious: Yes (Other)
  Sender: FDA-Public Use
  Company Number: US-ASTRAZENECA-2006UW24336

PATIENT
  Age: 21104 Day
  Sex: Female
  Weight: 95.3 kg

DRUGS (8)
  1. SEROQUEL [Suspect]
     Indication: ANXIETY
     Route: 048
     Dates: start: 20030701, end: 20030801
  2. SEROQUEL [Suspect]
     Route: 048
     Dates: start: 20030709, end: 20030715
  3. TRILAFON [Concomitant]
  4. ZYPREXA [Concomitant]
  5. LEXAPRO [Concomitant]
  6. BUSPAR [Concomitant]
  7. COUMADIN [Concomitant]
     Dates: start: 20010503
  8. DEPAKOTE [Concomitant]
     Indication: MOOD SWINGS
     Dates: start: 20000510

REACTIONS (5)
  - DIABETES MELLITUS [None]
  - DIABETES MELLITUS INADEQUATE CONTROL [None]
  - HYPERHIDROSIS [None]
  - MUSCLE SPASMS [None]
  - TYPE 2 DIABETES MELLITUS [None]
